FAERS Safety Report 4633037-8 (Version None)
Quarter: 2005Q2

REPORT INFORMATION
  Report Type: 
  Country: None (occurrence: None)
  Receive Date: 20050412
  Receipt Date: 20041214
  Transmission Date: 20051028
  Serious: Yes (Death)
  Sender: FDA-Public Use
  Company Number: US-BRISTOL-MYERS SQUIBB COMPANY-12795886

PATIENT
  Age: 46 Year
  Sex: Male

DRUGS (8)
  1. MEGACE [Suspect]
     Indication: ANOREXIA
     Route: 048
     Dates: start: 20040625, end: 20040901
  2. MEGACE [Suspect]
     Indication: WEIGHT DECREASED
     Route: 048
     Dates: start: 20040625, end: 20040901
  3. FENTANYL [Concomitant]
     Route: 062
  4. INTERFERON ALFA-2B [Concomitant]
  5. ARANESP [Concomitant]
  6. PROMETHAZINE [Concomitant]
  7. DILAUDID [Concomitant]
     Indication: PAIN
     Route: 048
  8. ATIVAN [Concomitant]
     Indication: ANXIETY

REACTIONS (1)
  - METASTATIC RENAL CELL CARCINOMA [None]
